FAERS Safety Report 6338509-6 (Version None)
Quarter: 2009Q3

REPORT INFORMATION
  Report Type: 
  Country: None (occurrence: None)
  Receive Date: 20090901
  Receipt Date: 20090820
  Transmission Date: 20100115
  Serious: Yes (Death, Other)
  Sender: FDA-Public Use
  Company Number: 2009-02618

PATIENT
  Age: 75 Year
  Sex: Female
  Weight: 70 kg

DRUGS (9)
  1. VELCADE [Suspect]
     Indication: MULTIPLE MYELOMA
     Dosage: 2.4 MG, INTRAVENOUS
     Route: 042
     Dates: start: 20090112, end: 20090427
  2. DEXAMETHASONE [Concomitant]
  3. ACYCLOVIR [Concomitant]
  4. CLODRONATE DISODIUM (CLODRONATE DISODIUM) [Concomitant]
  5. SULFAMETHOXAZOLE AND TRIMETHOPRIM [Concomitant]
  6. PYRIDOXINE (PYRIDOXINE) [Concomitant]
  7. OMEPRAZOLE [Concomitant]
  8. SUPRENOPHINE (BUPRENOPHRINE) [Concomitant]
  9. METOCLOPRAMIDE [Concomitant]

REACTIONS (4)
  - DISEASE PROGRESSION [None]
  - DRUG INEFFECTIVE [None]
  - MULTIPLE MYELOMA [None]
  - NEUROPATHY PERIPHERAL [None]
